FAERS Safety Report 8272524-0 (Version None)
Quarter: 2012Q2

REPORT INFORMATION
  Report Type: 
  Country: None (occurrence: None)
  Receive Date: 20120410
  Receipt Date: 20120329
  Transmission Date: 20120825
  Serious: Yes (Death)
  Sender: FDA-Public Use
  Company Number: TW-ROCHE-1055851

PATIENT
  Age: 50 Year
  Sex: Male

DRUGS (2)
  1. VELCADE [Suspect]
     Indication: TRANSPLANT REJECTION
     Route: 065
     Dates: start: 20090301
  2. RITUXIMAB [Suspect]
     Indication: PRODUCT USED FOR UNKNOWN INDICATION
     Dates: start: 20090301

REACTIONS (1)
  - DEATH [None]
